FAERS Safety Report 7405499-4 (Version None)
Quarter: 2011Q2

REPORT INFORMATION
  Report Type: 
  Country: None (occurrence: None)
  Receive Date: 20110404
  Receipt Date: 20110329
  Transmission Date: 20111010
  Serious: Yes (Death)
  Sender: FDA-Public Use
  Company Number: 2011SP014207

PATIENT
  Age: 74 Year
  Sex: Female
  Weight: 51.2 kg

DRUGS (6)
  1. ZONISAMIDE [Suspect]
     Indication: PROPHYLAXIS
     Dosage: GT
     Dates: start: 20100322, end: 20100803
  2. TEMODAL [Suspect]
     Indication: GLIOBLASTOMA MULTIFORME
     Dosage: SEE IMAGE
     Route: 048
     Dates: start: 20100324, end: 20100328
  3. TEMODAL [Suspect]
     Indication: GLIOBLASTOMA MULTIFORME
     Dosage: SEE IMAGE
     Route: 048
     Dates: start: 20100525, end: 20100529
  4. TEMODAL [Suspect]
     Indication: GLIOBLASTOMA MULTIFORME
     Dosage: SEE IMAGE
     Route: 048
     Dates: start: 20100421, end: 20100424
  5. BIOFERMIN-R (ANTIBIOTICS-RESISTANT LACTIC ACID BACTERIAE [Concomitant]
  6. NEBULIZER [Concomitant]

REACTIONS (3)
  - HAEMORRHAGIC ANAEMIA [None]
  - MELAENA [None]
  - ASTHENIA [None]
